FAERS Safety Report 9690974 (Version 2)
Quarter: 2013Q4

REPORT INFORMATION
  Report Type: Spontaneous
  Country: US (occurrence: US)
  Receive Date: 20131115
  Receipt Date: 20131203
  Transmission Date: 20140711
  Serious: No
  Sender: FDA-Public Use
  Company Number: US-PFIZER INC-2013321295

PATIENT
  Age: 76 Year
  Sex: Female

DRUGS (3)
  1. ZITHROMAX [Suspect]
     Dosage: UNK
  2. PEPCID COMPLETE [Concomitant]
     Dosage: UNK
  3. TYLENOL ARTHRITIS [Concomitant]
     Dosage: UNK

REACTIONS (2)
  - Arthritis [Unknown]
  - Drug hypersensitivity [Unknown]
